FAERS Safety Report 10009188 (Version 2)
Quarter: 2014Q1

REPORT INFORMATION
  Report Type: Spontaneous
  Country: US (occurrence: US)
  Receive Date: 20140313
  Receipt Date: 20140313
  Transmission Date: 20141002
  Serious: No
  Sender: FDA-Public Use
  Company Number: US-GILEAD-2012-0057729

PATIENT
  Age: 77 Year
  Sex: Female

DRUGS (3)
  1. LETAIRIS [Suspect]
     Indication: PULMONARY HYPERTENSION
     Dosage: 5 MG, UNK
     Route: 048
     Dates: start: 20120626, end: 20120707
  2. LETAIRIS [Suspect]
     Indication: CONNECTIVE TISSUE DISORDER
  3. LETAIRIS [Suspect]
     Indication: SCLERODERMA

REACTIONS (8)
  - Chills [Unknown]
  - Wheezing [Unknown]
  - Nasal inflammation [Unknown]
  - Dyspnoea [Unknown]
  - Dyspnoea [Unknown]
  - Nasal congestion [Unknown]
  - Sinusitis [Unknown]
  - Sinusitis [Unknown]
